FAERS Safety Report 9969698 (Version 1)
Quarter: 2014Q1

REPORT INFORMATION
  Report Type: Spontaneous
  Country: US (occurrence: None)
  Receive Date: 20140304
  Receipt Date: 20140304
  Transmission Date: 20141002
  Serious: Yes (Disabling)
  Sender: FDA-Public Use
  Company Number: None

PATIENT
  Age: 57 Year
  Sex: Female
  Weight: 68.95 kg

DRUGS (2)
  1. ARTHMAX PRO [Suspect]
     Indication: ARTHRALGIA
     Dosage: TAKEN BY MOUTH
     Dates: start: 20110131, end: 20140212
  2. ARTHMAX PRO [Suspect]
     Indication: PAIN IN EXTREMITY
     Dosage: TAKEN BY MOUTH
     Dates: start: 20110131, end: 20140212

REACTIONS (3)
  - Gastric disorder [None]
  - Abdominal pain upper [None]
  - Dyspepsia [None]
